FAERS Safety Report 6666959-7 (Version None)
Quarter: 2010Q2

REPORT INFORMATION
  Report Type: 
  Country: None (occurrence: None)
  Receive Date: 20100405
  Receipt Date: 20100324
  Transmission Date: 20101027
  Serious: Yes (Other)
  Sender: FDA-Public Use
  Company Number: PHHY2010TW18874

PATIENT
  Age: 80 Year
  Sex: Female
  Weight: 48 kg

DRUGS (5)
  1. ACLASTA [Suspect]
     Indication: OSTEOPOROSIS
     Dosage: 5 MG/100 ML ONCE YEARLY
     Route: 042
     Dates: start: 20081101
  2. ACLASTA [Suspect]
     Dosage: 5 MG/100 ML ONCE YEARLY
     Route: 042
     Dates: start: 20091201
  3. BONIVA [Suspect]
     Indication: OSTEOPOROSIS
     Dosage: 3 MG, BID
     Route: 042
     Dates: end: 20070101
  4. FOSAMAX PLUS D [Suspect]
     Indication: OSTEOPOROSIS
     Dosage: 70 MG ONCE WEEKLY
     Route: 048
     Dates: start: 20050101, end: 20070101
  5. LESCOL [Concomitant]
     Dosage: ONCE DAILY
     Route: 048

REACTIONS (16)
  - DEBRIDEMENT [None]
  - DENTAL IMPLANTATION [None]
  - ERYTHEMA [None]
  - HYPOPHAGIA [None]
  - IMPAIRED HEALING [None]
  - LYMPH NODE PAIN [None]
  - LYMPHADENOPATHY [None]
  - ORAL DISCOMFORT [None]
  - ORAL DISORDER [None]
  - OSTEOMYELITIS [None]
  - OSTEONECROSIS [None]
  - PAIN [None]
  - PURULENCE [None]
  - SOFT TISSUE INFECTION [None]
  - SWELLING [None]
  - TOOTHACHE [None]
